FAERS Safety Report 22303448 (Version 1)
Quarter: 2023Q2

REPORT INFORMATION
  Report Type: Report from Study
  Country: FR (occurrence: None)
  Receive Date: 20230510
  Receipt Date: 20230510
  Transmission Date: 20230721
  Serious: Yes (Other)
  Sender: FDA-Public Use
  Company Number: 2023A048521

PATIENT
  Sex: Female

DRUGS (1)
  1. TAGRISSO [Suspect]
     Active Substance: OSIMERTINIB
     Indication: Non-small cell lung cancer metastatic
     Route: 048
     Dates: start: 20211216, end: 20220916

REACTIONS (4)
  - Malignant neoplasm progression [Unknown]
  - Intentional product misuse [Recovered/Resolved]
  - Treatment noncompliance [Unknown]
  - Off label use [Unknown]
